FAERS Safety Report 22599823 (Version 3)
Quarter: 2023Q4

REPORT INFORMATION
  Report Type: Spontaneous
  Country: US (occurrence: US)
  Receive Date: 20230614
  Receipt Date: 20231109
  Transmission Date: 20240109
  Serious: No
  Sender: FDA-Public Use
  Company Number: US-SA-SAC20230612001063

PATIENT
  Age: 55 Year
  Sex: Female
  Weight: 81.6 kg

DRUGS (18)
  1. DUPIXENT [Suspect]
     Active Substance: DUPILUMAB
     Indication: Dermatitis atopic
     Dosage: 1 DF, QOW
     Route: 058
  2. DUPIXENT [Suspect]
     Active Substance: DUPILUMAB
     Indication: Asthma
     Dosage: 200 MG, QOW
     Route: 058
     Dates: end: 202305
  3. PROLIA [Concomitant]
     Active Substance: DENOSUMAB
  4. LIOTHYRONINE [Concomitant]
     Active Substance: LIOTHYRONINE
  5. HYDROCODONE [Concomitant]
     Active Substance: HYDROCODONE
  6. PREDNISONE [Concomitant]
     Active Substance: PREDNISONE
  7. METRONIDAZOLE [Concomitant]
     Active Substance: METRONIDAZOLE
  8. LORAZEPAM [Concomitant]
     Active Substance: LORAZEPAM
  9. LEVOTHYROXINE [Concomitant]
     Active Substance: LEVOTHYROXINE
  10. MONTELUKAST [Concomitant]
     Active Substance: MONTELUKAST SODIUM
  11. ONDANSETRON [Concomitant]
     Active Substance: ONDANSETRON
  12. ADVAIR HFA [Concomitant]
     Active Substance: FLUTICASONE PROPIONATE\SALMETEROL XINAFOATE
  13. QUETIAPINE [Concomitant]
     Active Substance: QUETIAPINE
  14. VILAZODONE [Concomitant]
     Active Substance: VILAZODONE
  15. VALACYCLOVIR [Concomitant]
     Active Substance: VALACYCLOVIR HYDROCHLORIDE
  16. IPRATROPIUM [Concomitant]
     Active Substance: IPRATROPIUM
  17. DEXTROAMPHETAMINE [Concomitant]
     Active Substance: DEXTROAMPHETAMINE
  18. ALBUTEROL SULFATE [Concomitant]
     Active Substance: ALBUTEROL SULFATE

REACTIONS (7)
  - Butterfly rash [Not Recovered/Not Resolved]
  - Periorbital swelling [Unknown]
  - Eyelid rash [Unknown]
  - Skin burning sensation [Not Recovered/Not Resolved]
  - Eye swelling [Unknown]
  - Rash [Unknown]
  - Drug hypersensitivity [Unknown]

NARRATIVE: CASE EVENT DATE: 20210404
